FAERS Safety Report 5153076-0 (Version None)
Quarter: 2006Q4

REPORT INFORMATION
  Report Type: 
  Country: None (occurrence: None)
  Receive Date: 20061117
  Receipt Date: 20061107
  Transmission Date: 20070319
  Serious: Yes (Other)
  Sender: FDA-Public Use
  Company Number: PHBS2006BR17384

PATIENT
  Age: 85 Year
  Sex: Female
  Weight: 90 kg

DRUGS (6)
  1. MIACALCIN [Suspect]
     Indication: SPINAL DISORDER
     Dosage: 100 IU, QOD
  2. AMITRIL [Concomitant]
     Indication: SPINAL DISORDER
     Dosage: 2.5 MG, BID
     Route: 048
  3. ENALAPRIL MALEATE [Concomitant]
     Indication: HYPERTENSION
     Dosage: 10 MG, QD
     Route: 048
  4. SUSTRATE [Concomitant]
     Indication: HYPERTENSION
     Dosage: UNK, QD
     Route: 048
  5. MODURETIC 5-50 [Concomitant]
     Indication: DIABETES MELLITUS
     Dosage: UNK, QD
     Route: 048
  6. DIABINESE [Concomitant]
     Indication: DIABETES MELLITUS
     Dosage: UNK, QD
     Route: 048

REACTIONS (3)
  - MUSCLE SPASMS [None]
  - PAIN [None]
  - SHOCK [None]
